FAERS Safety Report 10048701 (Version 2)
Quarter: 2014Q2

REPORT INFORMATION
  Report Type: Report from Study
  Country: FR (occurrence: FR)
  Receive Date: 20140331
  Receipt Date: 20140411
  Transmission Date: 20141212
  Serious: Yes (Death)
  Sender: FDA-Public Use
  Company Number: FR-BAXTER-2014BAX014948

PATIENT
  Sex: 0

DRUGS (3)
  1. KIOVIG, 100 MG/ML, SOLUTION POUR PERFUSION [Suspect]
     Indication: CHRONIC ALLOGRAFT NEPHROPATHY
     Dosage: 4 DOSES 1 G/KG
     Route: 042
  2. KIOVIG, 100 MG/ML, SOLUTION POUR PERFUSION [Suspect]
     Indication: OFF LABEL USE
  3. RITUXIMAB [Suspect]
     Indication: CHRONIC ALLOGRAFT NEPHROPATHY
     Dosage: 2 DOSES 375 MG/M
     Route: 065

REACTIONS (1)
  - Death [Fatal]
